FAERS Safety Report 8051283-0 (Version None)
Quarter: 2012Q1

REPORT INFORMATION
  Report Type: 
  Country: None (occurrence: None)
  Receive Date: 20120117
  Receipt Date: 20120105
  Transmission Date: 20120608
  Serious: Yes (Other)
  Sender: FDA-Public Use
  Company Number: AT-ASTRAZENECA-2012SE01040

PATIENT
  Age: 88 Year
  Sex: Female

DRUGS (2)
  1. ENOXAPARIN [Concomitant]
     Indication: THROMBOSIS
     Dates: start: 20090101
  2. FASLODEX [Suspect]
     Indication: BREAST CANCER
     Route: 030
     Dates: start: 20110901

REACTIONS (1)
  - VENOUS THROMBOSIS [None]
